FAERS Safety Report 8197800-1 (Version None)
Quarter: 2012Q1

REPORT INFORMATION
  Report Type: 
  Country: None (occurrence: None)
  Receive Date: 20120227
  Receipt Date: 20120112
  Transmission Date: 20120608
  Serious: No
  Sender: FDA-Public Use
  Company Number: 343798

PATIENT
  Age: 77 Year
  Sex: Female
  Weight: 73.9 kg

DRUGS (1)
  1. VICTOZA [Suspect]
     Indication: TYPE 2 DIABETES MELLITUS
     Dosage: 1.2 MG, QD
     Dates: start: 20100101, end: 20111005

REACTIONS (2)
  - NAUSEA [None]
  - CONSTIPATION [None]
